FAERS Safety Report 17078312 (Version 1)
Quarter: 2019Q4

REPORT INFORMATION
  Report Type: Spontaneous
  Country: CA (occurrence: CA)
  Receive Date: 20191126
  Receipt Date: 20191126
  Transmission Date: 20200122
  Serious: Yes (Other)
  Sender: FDA-Public Use
  Company Number: CA-CELLTRION INC.-2019CA026765

PATIENT

DRUGS (3)
  1. CYCLOSPORINE. [Concomitant]
     Active Substance: CYCLOSPORINE
     Dosage: 100 MG, 2X/DAY
  2. CYCLOSPORINE. [Concomitant]
     Active Substance: CYCLOSPORINE
     Dosage: 25-50 MG, 2X/DAY
     Dates: start: 201205, end: 2013
  3. INFLIXIMAB PFIZER (UNKNOWN) [Suspect]
     Active Substance: INFLIXIMAB
     Indication: IRITIS
     Dosage: UNK, ONCE EVERY 6 WEEKS
     Route: 042
     Dates: start: 2011, end: 201204

REACTIONS (5)
  - Psoriasis [Recovering/Resolving]
  - Spondylitis [Recovering/Resolving]
  - Product use in unapproved indication [Unknown]
  - Psoriatic arthropathy [Recovering/Resolving]
  - Off label use [Unknown]

NARRATIVE: CASE EVENT DATE: 2011
